FAERS Safety Report 18006583 (Version 10)
Quarter: 2021Q2

REPORT INFORMATION
  Report Type: Spontaneous
  Country: CA (occurrence: CA)
  Receive Date: 20200710
  Receipt Date: 20210528
  Transmission Date: 20210717
  Serious: Yes (Other)
  Sender: FDA-Public Use
  Company Number: CA-PFIZER INC-2020262949

PATIENT
  Age: 44 Year
  Sex: Female

DRUGS (2)
  1. XELJANZ [Suspect]
     Active Substance: TOFACITINIB CITRATE
     Indication: RHEUMATOID ARTHRITIS
     Dosage: 5 MG, 2X/DAY
     Route: 048
     Dates: start: 20170112, end: 2018
  2. XELJANZ [Suspect]
     Active Substance: TOFACITINIB CITRATE
     Dosage: 5 MG, 2X/DAY
     Route: 048
     Dates: start: 20200708, end: 20210315

REACTIONS (18)
  - Crohn^s disease [Unknown]
  - Swelling [Not Recovered/Not Resolved]
  - COVID-19 [Unknown]
  - Deep vein thrombosis [Unknown]
  - Heart rate increased [Unknown]
  - Pain in extremity [Unknown]
  - Peripheral swelling [Unknown]
  - Dyspnoea [Unknown]
  - Limb discomfort [Unknown]
  - Fatigue [Unknown]
  - Therapeutic product effect incomplete [Unknown]
  - Fibrin D dimer increased [Recovered/Resolved]
  - Condition aggravated [Unknown]
  - Serum ferritin abnormal [Unknown]
  - C-reactive protein increased [Not Recovered/Not Resolved]
  - Inflammation [Unknown]
  - Cough [Recovering/Resolving]
  - Body temperature increased [Unknown]

NARRATIVE: CASE EVENT DATE: 2021
